FAERS Safety Report 6322856 (Version 5)
Quarter: 2013Q1

REPORT INFORMATION
  Report Type: Spontaneous
  Country: US (occurrence: US)
  Receive Date: 20070530
  Receipt Date: 20130225
  Transmission Date: 20140127
  Serious: Yes (Other)
  Sender: FDA-Public Use
  Company Number: US-ASTRAZENECA-2007UW12642

PATIENT
  Age: 64 Year
  Sex: Female
  Weight: 77.1 kg

DRUGS (10)
  1. NEXIUM [Suspect]
     Indication: GASTROOESOPHAGEAL REFLUX DISEASE
     Route: 048
     Dates: start: 2006, end: 2006
  2. NEXIUM [Suspect]
     Indication: GASTROOESOPHAGEAL REFLUX DISEASE
     Route: 048
     Dates: start: 2007, end: 20070522
  3. SYMBICORT PMDI [Suspect]
     Indication: EMPHYSEMA
     Dosage: 160/4.5, 2 PUFFS TWO TIMES A DAY
     Route: 055
     Dates: start: 20130115, end: 201302
  4. LEXAPRO [Concomitant]
  5. FLAGYL [Concomitant]
     Dates: start: 2006, end: 2006
  6. ALBUTEROL [Concomitant]
     Indication: WHEEZING
     Dates: start: 2004, end: 2004
  7. EVISTA [Concomitant]
     Indication: BONE DENSITY DECREASED
     Dates: start: 1996, end: 2004
  8. DILANTIN [Concomitant]
     Indication: CONVULSION
     Dates: start: 20060330
  9. SPIRIVA [Concomitant]
     Indication: EMPHYSEMA
     Dosage: ONE PUFF, DAILY
     Route: 055
     Dates: start: 201301
  10. VIMPAT [Concomitant]
     Indication: CONVULSION
     Dosage: DAILY

REACTIONS (8)
  - Convulsion [Unknown]
  - Arteriovenous malformation [Unknown]
  - Drug hypersensitivity [Unknown]
  - Dyspnoea [Not Recovered/Not Resolved]
  - Headache [Recovered/Resolved]
  - Pruritus [Recovered/Resolved]
  - Urticaria [Recovered/Resolved]
  - Dysphonia [Not Recovered/Not Resolved]
